FAERS Safety Report 12694111 (Version 3)
Quarter: 2017Q2

REPORT INFORMATION
  Report Type: Report from Study
  Country: JP (occurrence: JP)
  Receive Date: 20160829
  Receipt Date: 20170621
  Transmission Date: 20170830
  Serious: Yes (Hospitalization, Other)
  Sender: FDA-Public Use
  Company Number: JP-BRISTOL-MYERS SQUIBB COMPANY-BMS-2016-042754

PATIENT
  Age: 50 Year
  Sex: Male
  Weight: 63 kg

DRUGS (9)
  1. NIVOLUMAB [Suspect]
     Active Substance: NIVOLUMAB
     Indication: MALIGNANT MELANOMA
     Dosage: UNK
     Route: 065
     Dates: start: 20151203, end: 20160421
  2. PREDONINE [Concomitant]
     Active Substance: PREDNISOLONE
     Indication: MALIGNANT MELANOMA
     Dosage: 2 TAB, UNK
     Route: 048
     Dates: start: 20160527, end: 20160613
  3. NIVOLUMAB [Suspect]
     Active Substance: NIVOLUMAB
     Indication: PRODUCT USED FOR UNKNOWN INDICATION
     Dosage: UNK
     Route: 065
     Dates: start: 20160711
  4. BAKTAR [Concomitant]
     Active Substance: SULFAMETHOXAZOLE\TRIMETHOPRIM
     Indication: MALIGNANT MELANOMA
     Dosage: 1 TAB, UNK
     Route: 048
     Dates: start: 20160527, end: 20160613
  5. IPILIMUMAB [Suspect]
     Active Substance: IPILIMUMAB
     Indication: MALIGNANT MELANOMA
     Dosage: 3 MG/KG, UNK, (226MG/DAY)
     Route: 041
     Dates: start: 20160509
  6. LOXOPROFEN SODIUM [Concomitant]
     Active Substance: LOXOPROFEN SODIUM
     Indication: MALIGNANT MELANOMA
     Dosage: 1 TAB, UNK
     Route: 048
     Dates: start: 20160526, end: 20161126
  7. PICOSULFAT [Concomitant]
     Indication: MALIGNANT MELANOMA
     Dosage: UNK
     Route: 048
     Dates: start: 20160526, end: 20160709
  8. LANSOPRAZOLE. [Concomitant]
     Active Substance: LANSOPRAZOLE
     Indication: MALIGNANT MELANOMA
     Dosage: 1 TAB, UNK
     Route: 048
     Dates: start: 20160527, end: 20160613
  9. REBAMIPIDE [Concomitant]
     Active Substance: REBAMIPIDE
     Indication: MALIGNANT MELANOMA
     Dosage: 1 TAB, UNK
     Route: 048
     Dates: start: 20160526, end: 20160526

REACTIONS (2)
  - Enteritis [Recovering/Resolving]
  - Liver disorder [Recovered/Resolved]

NARRATIVE: CASE EVENT DATE: 20160526
